FAERS Safety Report 8779607 (Version 2)
Quarter: 2012Q4

REPORT INFORMATION
  Report Type: 
  Country: JP (occurrence: JP)
  Receive Date: 20120911
  Receipt Date: 20121129
  Transmission Date: 20130627
  Serious: Yes (Hospitalization, Other)
  Sender: FDA-Public Use
  Company Number: JP-009507513-2012SP031417

PATIENT
  Age: 64 Year
  Sex: Male
  Weight: 74 kg

DRUGS (8)
  1. PEGINTRON [Suspect]
     Indication: CHRONIC HEPATITIS C
     Dosage: 1.5 Microgram per kilogram, qw
     Route: 058
     Dates: end: 20120614
  2. PEGINTRON [Suspect]
     Dosage: 50 Microgram, qw
     Route: 058
     Dates: start: 20120621
  3. PEGINTRON [Suspect]
     Dosage: 70 Microgram, qw
     Route: 058
     Dates: start: 20120628
  4. PEGINTRON [Suspect]
     Dosage: 80 Microgram, qw
     Route: 058
     Dates: start: 20120719, end: 20121101
  5. REBETOL [Suspect]
     Indication: CHRONIC HEPATITIS C
     Dosage: 800 mg, qd
     Route: 048
     Dates: end: 20120530
  6. REBETOL [Suspect]
     Dosage: 600 mg, qd
     Route: 048
     Dates: start: 20120531, end: 20120627
  7. REBETOL [Suspect]
     Dosage: 400 mg, qd
     Route: 048
     Dates: start: 20120628, end: 20121107
  8. TELAVIC [Suspect]
     Indication: CHRONIC HEPATITIS C
     Dosage: 2250 mg,qd, cumulative dose 6750 mg
     Route: 048
     Dates: start: 20120524, end: 20120815

REACTIONS (5)
  - Skin disorder [Recovering/Resolving]
  - Blood uric acid increased [Recovered/Resolved]
  - Haemoglobin decreased [Recovering/Resolving]
  - Platelet count decreased [Recovering/Resolving]
  - Oedema peripheral [Recovered/Resolved]
